FAERS Safety Report 4833436-5 (Version None)
Quarter: 2005Q4

REPORT INFORMATION
  Report Type: 
  Country: None (occurrence: None)
  Receive Date: 20051117
  Receipt Date: 20051110
  Transmission Date: 20060501
  Serious: No
  Sender: FDA-Public Use
  Company Number: RS005550-J

PATIENT
  Age: 59 Year
  Sex: Female

DRUGS (5)
  1. RABEPRAZOLE SODIUM [Suspect]
     Indication: REFLUX OESOPHAGITIS
     Dosage: 10 MG, 1 IN 1 D, ORAL
     Route: 048
  2. LEVOTHYROXINE SODIUM [Concomitant]
  3. GUPERIES  (ETIZOLAM) [Concomitant]
  4. BOIOGITO [Concomitant]
  5. EPPI-KA-JUTSU-TO [Concomitant]

REACTIONS (2)
  - BLOOD GLUCOSE DECREASED [None]
  - TINNITUS [None]
